FAERS Safety Report 23486867 (Version 5)
Quarter: 2024Q3

REPORT INFORMATION
  Report Type: Spontaneous
  Country: CA (occurrence: CA)
  Receive Date: 20240206
  Receipt Date: 20240701
  Transmission Date: 20241016
  Serious: Yes (Other)
  Sender: PFIZER
  Company Number: CA-PFIZER INC-202300188712

PATIENT
  Age: 29 Year
  Sex: Female

DRUGS (5)
  1. ABRILADA [Suspect]
     Active Substance: ADALIMUMAB-AFZB
     Indication: Hidradenitis
     Dosage: 1 DF, WEEK0 160MG, WEEK2 80MG, THEN 40MG EVERY WEEK STARTING WEEK4 - PREFILLED PEN
     Route: 058
     Dates: start: 20230505
  2. ABRILADA [Suspect]
     Active Substance: ADALIMUMAB-AFZB
     Dosage: 1 DF, WEEK0 160MG, WEEK2 80MG, THEN 40MG EVERY WEEK STARTING WEEK4 - PREFILLED PEN
     Route: 058
     Dates: start: 20230505, end: 2024
  3. ABRILADA [Suspect]
     Active Substance: ADALIMUMAB-AFZB
     Dosage: 1 DF, WEEK0 160MG, WEEK2 80MG, THEN 40MG EVERY WEEK STARTING WEEK4 - PREFILLED PEN
     Route: 058
     Dates: start: 20231114
  4. ALDACTONE [Concomitant]
     Active Substance: SPIRONOLACTONE
     Dosage: 1 DF
  5. CLINDAMYCIN PHOSPHATE [Concomitant]
     Active Substance: CLINDAMYCIN PHOSPHATE
     Dosage: 1 DF (1%)

REACTIONS (12)
  - Surgery [Not Recovered/Not Resolved]
  - Drug ineffective [Unknown]
  - Injection site warmth [Unknown]
  - Injection site pruritus [Unknown]
  - Nasopharyngitis [Not Recovered/Not Resolved]
  - Rash [Unknown]
  - Condition aggravated [Unknown]
  - COVID-19 [Recovered/Resolved]
  - Influenza [Not Recovered/Not Resolved]
  - Illness [Not Recovered/Not Resolved]
  - Nasal congestion [Not Recovered/Not Resolved]
  - Asthenia [Unknown]

NARRATIVE: CASE EVENT DATE: 20230101
